FAERS Safety Report 8173886-5 (Version None)
Quarter: 2012Q1

REPORT INFORMATION
  Report Type: 
  Country: None (occurrence: None)
  Receive Date: 20120229
  Receipt Date: 20120217
  Transmission Date: 20120608
  Serious: Yes (Other)
  Sender: FDA-Public Use
  Company Number: GR-ELI_LILLY_AND_COMPANY-GR201202007164

PATIENT
  Age: 52 Year
  Sex: Female

DRUGS (3)
  1. CALCIUM [Concomitant]
     Indication: OSTEOPOROSIS
  2. NEBIVOLOL HCL [Concomitant]
     Dosage: 5.0 MG, UNK
     Route: 048
  3. RALOXIFENE HYDROCHLORIDE [Suspect]
     Indication: OSTEOPOROSIS
     Dosage: 60 MG, QD
     Route: 048
     Dates: start: 20120217, end: 20120217

REACTIONS (3)
  - NAUSEA [None]
  - CHILLS [None]
  - GAIT DISTURBANCE [None]
